FAERS Safety Report 17783553 (Version 1)
Quarter: 2020Q2

REPORT INFORMATION
  Report Type: Spontaneous
  Country: US (occurrence: US)
  Receive Date: 20200514
  Receipt Date: 20200514
  Transmission Date: 20200714
  Serious: Yes (Hospitalization)
  Sender: FDA-Public Use
  Company Number: None

PATIENT
  Age: 78 Year
  Sex: Female
  Weight: 56.4 kg

DRUGS (2)
  1. PALBOCICLIB (PD-0332991) [Suspect]
     Active Substance: PALBOCICLIB
     Dates: end: 20200421
  2. FEMARA [Suspect]
     Active Substance: LETROZOLE
     Dates: end: 20200428

REACTIONS (2)
  - Diarrhoea [None]
  - Colitis [None]

NARRATIVE: CASE EVENT DATE: 20200508
